FAERS Safety Report 23707836 (Version 2)
Quarter: 2024Q2

REPORT INFORMATION
  Report Type: Report from Study
  Country: GB (occurrence: GB)
  Receive Date: 20240404
  Receipt Date: 20240426
  Transmission Date: 20240716
  Serious: Yes (Death, Other)
  Sender: FDA-Public Use
  Company Number: GB-IPSEN Group, Research and Development-2024-05547

PATIENT
  Age: 84 Year
  Sex: Male

DRUGS (1)
  1. LANREOTIDE ACETATE [Suspect]
     Active Substance: LANREOTIDE ACETATE
     Indication: Neuroendocrine tumour
     Dosage: 90MG/0.5ML SOLUTION FOR INJECTION PRE-FILLED SYRINGES (IPSEN LTD) 1 PRE-FILLED DISPOSABLE
     Route: 058

REACTIONS (1)
  - Death [Fatal]

NARRATIVE: CASE EVENT DATE: 20240301
